FAERS Safety Report 16330069 (Version 1)
Quarter: 2019Q2

REPORT INFORMATION
  Report Type: Spontaneous
  Country: DK (occurrence: DK)
  Receive Date: 20190520
  Receipt Date: 20190520
  Transmission Date: 20190711
  Serious: Yes (Other)
  Sender: FDA-Public Use
  Company Number: DK-SA-2019SA135871

PATIENT
  Age: 59 Year
  Sex: Female

DRUGS (18)
  1. MONTELUKAST [Concomitant]
     Active Substance: MONTELUKAST SODIUM
     Indication: ASTHMA
     Dosage: 10 MG, QD
     Route: 048
     Dates: start: 20141002
  2. ZOVIRAX [Concomitant]
     Active Substance: ACYCLOVIR
     Indication: HERPES OPHTHALMIC
     Dosage: 1 STRIPE IN THE RIGHT EYE
     Dates: start: 20151015
  3. CORODIL [ENALAPRIL MALEATE] [Concomitant]
     Indication: HYPERTENSION
     Dosage: 20 MG, QD
     Route: 048
     Dates: start: 20121001
  4. AZITHROMYCIN SANDOZ [Concomitant]
     Active Substance: AZITHROMYCIN ANHYDROUS
     Indication: INFECTION
     Dosage: 250 MG
     Route: 048
     Dates: start: 20171012
  5. DUPIXENT [Suspect]
     Active Substance: DUPILUMAB
     Indication: DERMATITIS ATOPIC
     Dosage: 300 MG, QOW
     Route: 058
     Dates: start: 20181129
  6. XOLAIR [Concomitant]
     Active Substance: OMALIZUMAB
     Indication: ASTHMA
     Dosage: 600 MG, QW
     Route: 058
     Dates: start: 20170307
  7. AEROBEC [Concomitant]
     Indication: ASTHMA
     Dosage: 200 UG, QD
     Route: 055
     Dates: start: 20160822
  8. AMLODIPINE [Concomitant]
     Active Substance: AMLODIPINE BESYLATE
     Indication: HYPERTENSION
     Dosage: 10 MG, QD
     Route: 048
     Dates: start: 20121001
  9. CIPRAMIL [CITALOPRAM HYDROBROMIDE] [Concomitant]
     Active Substance: CITALOPRAM HYDROBROMIDE
     Indication: DEPRESSION
     Dosage: 40 MG, QD
     Route: 048
     Dates: start: 20140205
  10. PREDNISOLON ACTAVIS [Concomitant]
     Active Substance: PREDNISOLONE
     Indication: ADRENOCORTICAL STEROID THERAPY
     Dosage: UNK, UNK
     Route: 048
     Dates: start: 20180628
  11. OXIS TURBOHALER [Concomitant]
     Indication: ASTHMA
     Dosage: 18 UG, QD
     Route: 055
     Dates: start: 20160523
  12. CETIRIZINE TEVA [Concomitant]
     Indication: SEASONAL ALLERGY
     Dosage: 1 TABLET IF NEEDED, MAX 1 X DAILY
     Route: 048
     Dates: start: 20131001
  13. EPIPEN [Concomitant]
     Active Substance: EPINEPHRINE
     Indication: ANAPHYLACTIC SHOCK
     Dosage: .3 G, 1 DOSE IN CASE OF SEIZURES
     Route: 030
     Dates: start: 20130919
  14. DIPRODERM [BETAMETHASONE DIPROPIONATE] [Concomitant]
     Indication: ECZEMA
     Dosage: 2 DF, QD, 1 APPLICATION TWICE DAILY
     Route: 003
     Dates: start: 20160523
  15. DERMOVAT [CLOBETASOL PROPIONATE] [Concomitant]
     Indication: ECZEMA
     Dosage: 1 DF, QD
     Route: 003
     Dates: start: 20161202
  16. BERODUAL [Concomitant]
     Active Substance: FENOTEROL HYDROBROMIDE\IPRATROPIUM BROMIDE
     Indication: ASTHMA
     Dosage: , STRENGTH: 1.25 + 0.5 MGUNK
     Route: 055
     Dates: start: 20161006
  17. ALENDRONAT AUROBINDO [Concomitant]
     Active Substance: ALENDRONATE SODIUM
     Indication: OSTEOPOROSIS
     Dosage: 70 MG, QW
     Route: 048
     Dates: start: 20161012
  18. BIOCLAVID [Concomitant]
     Active Substance: AMOXICILLIN\CLAVULANIC ACID
     Indication: PNEUMONIA
     Dosage: 1 DF, PRN, STRENGTH 500 MG + 125 MG.
     Route: 048
     Dates: start: 20180524

REACTIONS (3)
  - Dry eye [Recovering/Resolving]
  - Iridocyclitis [Recovering/Resolving]
  - Foreign body sensation in eyes [Recovering/Resolving]

NARRATIVE: CASE EVENT DATE: 20190117
